FAERS Safety Report 4692494-1 (Version None)
Quarter: 2005Q2

REPORT INFORMATION
  Report Type: 
  Country: None (occurrence: None)
  Receive Date: 20050613
  Receipt Date: 20050406
  Transmission Date: 20051028
  Serious: No
  Sender: FDA-Public Use
  Company Number: 2005-00735

PATIENT
  Sex: Male

DRUGS (1)
  1. VELCADE [Suspect]
     Dosage: INTRAVENOUS
     Route: 042

REACTIONS (1)
  - MEDICATION ERROR [None]
